FAERS Safety Report 6082624-1 (Version None)
Quarter: 2009Q1

REPORT INFORMATION
  Report Type: 
  Country: None (occurrence: None)
  Receive Date: 20090218
  Receipt Date: 20090211
  Transmission Date: 20090719
  Serious: Yes (Other)
  Sender: FDA-Public Use
  Company Number: US-PFIZER INC-2009168332

PATIENT
  Sex: Male

DRUGS (1)
  1. MEDROL [Suspect]

REACTIONS (4)
  - APHONIA [None]
  - HEART RATE INCREASED [None]
  - HYPERSENSITIVITY [None]
  - OBSTRUCTIVE AIRWAYS DISORDER [None]
